FAERS Safety Report 4635396-9 (Version None)
Quarter: 2005Q2

REPORT INFORMATION
  Report Type: 
  Country: None (occurrence: None)
  Receive Date: 20050414
  Receipt Date: 20050111
  Transmission Date: 20051028
  Serious: Yes (Hospitalization, Disabling, Other)
  Sender: FDA-Public Use
  Company Number: PT-SANOFI-SYNTHELABO-F01200500046

PATIENT
  Sex: Male

DRUGS (7)
  1. OXALIPLATIN [Suspect]
     Indication: COLORECTAL CANCER METASTATIC
     Route: 042
  2. OXALIPLATIN [Suspect]
     Route: 042
     Dates: start: 20050302, end: 20050302
  3. CAPECITABINE [Suspect]
     Dosage: 1800MG TWICE DAILY FOR 2 WEEKS, Q3W
     Route: 048
     Dates: end: 20041229
  4. CAPECITABINE [Suspect]
     Dosage: 1300MG TWICE DAILY FOR 2 WEEKS, Q3W
     Route: 048
     Dates: start: 20050302
  5. BEVACIZUMAB OR PLACEBO [Suspect]
     Route: 042
  6. BEVACIZUMAB OR PLACEBO [Suspect]
     Route: 042
     Dates: start: 20050302, end: 20050302
  7. ESTAZOLAM [Concomitant]

REACTIONS (4)
  - BLOOD POTASSIUM DECREASED [None]
  - BLOOD SODIUM DECREASED [None]
  - INFECTION [None]
  - RENAL FAILURE [None]
